FAERS Safety Report 7011994 (Version 4)
Quarter: 2020Q3

REPORT INFORMATION
  Report Type: Report from Study
  Country: PL (occurrence: PL)
  Receive Date: 20090605
  Receipt Date: 20100129
  Transmission Date: 20201105
  Serious: Yes (Hospitalization)
  Sender: FDA-Public Use
  Company Number: PL-JNJFOC-20090503813

PATIENT
  Age: 26 Year
  Sex: Female
  Weight: 46.5 kg

DRUGS (7)
  1. MESALAZIN [Concomitant]
     Indication: COLITIS ULCERATIVE
  2. GOLIMUMAB [Suspect]
     Active Substance: GOLIMUMAB
     Indication: COLITIS ULCERATIVE
     Route: 058
  3. ORTHO EVRA [Concomitant]
     Active Substance: ETHINYL ESTRADIOL\NORELGESTROMIN
     Route: 062
  4. GOLIMUMAB [Suspect]
     Active Substance: GOLIMUMAB
     Route: 058
  5. MEBEVERINE [Concomitant]
     Active Substance: MEBEVERINE
     Indication: COLITIS ULCERATIVE
     Route: 048
  6. VITAMIN B6 [Concomitant]
     Active Substance: PYRIDOXINE HYDROCHLORIDE
     Indication: ANTIBIOTIC PROPHYLAXIS
     Route: 048
  7. ISONIAZID. [Concomitant]
     Active Substance: ISONIAZID
     Indication: ANTIBIOTIC PROPHYLAXIS
     Route: 048

REACTIONS (1)
  - Volume blood decreased [Recovered/Resolved]

NARRATIVE: CASE EVENT DATE: 20090511
